FAERS Safety Report 21597770 (Version 1)
Quarter: 2022Q4

REPORT INFORMATION
  Report Type: Spontaneous
  Country: US (occurrence: None)
  Receive Date: 20221114
  Receipt Date: 20221114
  Transmission Date: 20230113
  Serious: Yes (Disabling, Other)
  Sender: FDA-Public Use
  Company Number: None

PATIENT
  Age: 57 Year
  Sex: Female
  Weight: 43.65 kg

DRUGS (3)
  1. TOPIRAMATE [Suspect]
     Active Substance: TOPIRAMATE
     Indication: Migraine
     Dosage: OTHER QUANTITY : 1 TABLET(S);?FREQUENCY : TWICE A DAY;?
     Route: 048
     Dates: start: 20220510, end: 20220624
  2. CHLORTHALIDONE [Concomitant]
     Active Substance: CHLORTHALIDONE
  3. METOPROLOL [Concomitant]

REACTIONS (3)
  - Visual perseveration [None]
  - Vision blurred [None]
  - Visual acuity reduced [None]

NARRATIVE: CASE EVENT DATE: 20220510
